FAERS Safety Report 24160262 (Version 4)
Quarter: 2025Q2

REPORT INFORMATION
  Report Type: Spontaneous
  Country: US (occurrence: US)
  Receive Date: 20240801
  Receipt Date: 20250604
  Transmission Date: 20250717
  Serious: Yes (Other)
  Sender: ROCHE
  Company Number: US-ROCHE-10000039005

PATIENT
  Age: 50 Year
  Sex: Female

DRUGS (15)
  1. CELLCEPT [Suspect]
     Active Substance: MYCOPHENOLATE MOFETIL
     Indication: Systemic lupus erythematosus
     Route: 048
  2. LUPKYNIS [Suspect]
     Active Substance: VOCLOSPORIN
     Indication: Lupus nephritis
     Route: 048
  3. LUPKYNIS [Suspect]
     Active Substance: VOCLOSPORIN
     Route: 048
     Dates: start: 20230423
  4. LUPKYNIS [Suspect]
     Active Substance: VOCLOSPORIN
     Route: 048
  5. LUPKYNIS [Suspect]
     Active Substance: VOCLOSPORIN
     Route: 048
  6. LUPKYNIS [Suspect]
     Active Substance: VOCLOSPORIN
     Route: 048
  7. LUPKYNIS [Suspect]
     Active Substance: VOCLOSPORIN
     Route: 048
  8. LUPKYNIS [Suspect]
     Active Substance: VOCLOSPORIN
     Route: 048
     Dates: start: 20230428
  9. ASPIRIN [Concomitant]
     Active Substance: ASPIRIN
  10. MYCOPHENOLIC ACID [Concomitant]
     Active Substance: MYCOPHENOLIC ACID
  11. FUROSEMIDE [Concomitant]
     Active Substance: FUROSEMIDE
  12. LISINOPRIL [Concomitant]
     Active Substance: LISINOPRIL
  13. BELIMUMAB [Concomitant]
     Active Substance: BELIMUMAB
  14. ZYRTEC [Concomitant]
     Active Substance: CETIRIZINE HYDROCHLORIDE
  15. ONDANSETRON [Concomitant]
     Active Substance: ONDANSETRON

REACTIONS (22)
  - Rash [Recovered/Resolved]
  - Blood glucose increased [Unknown]
  - Pain [Unknown]
  - Blood urine present [Unknown]
  - Abdominal distension [Unknown]
  - Fatigue [Unknown]
  - Product dose omission issue [Unknown]
  - Dizziness [Unknown]
  - Amenorrhoea [Unknown]
  - Coagulopathy [Unknown]
  - Gastrointestinal oedema [Unknown]
  - Renal impairment [Not Recovered/Not Resolved]
  - Protein urine present [Unknown]
  - Systemic lupus erythematosus [Not Recovered/Not Resolved]
  - Abdominal discomfort [Unknown]
  - Gastric haemorrhage [Unknown]
  - Creatinine urine decreased [Unknown]
  - Blood urea increased [Unknown]
  - Joint swelling [Unknown]
  - Peripheral swelling [Unknown]
  - Oedema peripheral [Unknown]
  - Nasal congestion [Unknown]
